FAERS Safety Report 6832642-8 (Version None)
Quarter: 2010Q3

REPORT INFORMATION
  Report Type: 
  Country: None (occurrence: None)
  Receive Date: 20100712
  Receipt Date: 20070315
  Transmission Date: 20110219
  Serious: No
  Sender: FDA-Public Use
  Company Number: US-PFIZER INC-2007021371

PATIENT

DRUGS (3)
  1. CHANTIX [Suspect]
  2. KLONOPIN [Suspect]
  3. TRAZODONE [Suspect]

REACTIONS (2)
  - DRUG INEFFECTIVE [None]
  - SLEEP TERROR [None]
